FAERS Safety Report 6493762-3 (Version None)
Quarter: 2009Q4

REPORT INFORMATION
  Report Type: 
  Country: None (occurrence: None)
  Receive Date: 20091214
  Receipt Date: 20081103
  Transmission Date: 20100525
  Serious: No
  Sender: FDA-Public Use
  Company Number: US-BRISTOL-MYERS SQUIBB COMPANY-14364053

PATIENT
  Age: 10 Year
  Sex: Male

DRUGS (5)
  1. ABILIFY [Suspect]
     Indication: MANIA
     Dosage: HS
     Route: 048
     Dates: start: 20080625
  2. ABILIFY [Suspect]
     Indication: BIPOLAR DISORDER
     Dosage: HS
     Route: 048
     Dates: start: 20080625
  3. HALDOL [Suspect]
     Dosage: DOSAGE FORM = UNITS NOT SPECIFIED
  4. LITHIUM [Concomitant]
     Dosage: 300MG AM 450(DOSE NOT SPECIFIED) HS
  5. LAMICTAL [Concomitant]

REACTIONS (3)
  - COGNITIVE DISORDER [None]
  - DISTURBANCE IN ATTENTION [None]
  - MOTOR DYSFUNCTION [None]
